FAERS Safety Report 5517748-8 (Version None)
Quarter: 2007Q4

REPORT INFORMATION
  Report Type: 
  Country: None (occurrence: None)
  Receive Date: 20071113
  Receipt Date: 20071031
  Transmission Date: 20080405
  Serious: Yes (Hospitalization)
  Sender: FDA-Public Use
  Company Number: 2007334260

PATIENT
  Age: 7 Year
  Sex: Female
  Weight: 29 kg

DRUGS (4)
  1. LISTERINE AGENT COOL BLUE BUBBLE BLAST (NO ACTIVE INGREDIENT) [Suspect]
     Dosage: ORAL
     Route: 048
  2. PULMICORT [Concomitant]
  3. XOPENEX [Concomitant]
  4. XYRTEC (CETIRIZINE HYDROCHLORIDE) [Concomitant]

REACTIONS (13)
  - ABDOMINAL PAIN [None]
  - ASTHMA [None]
  - ATELECTASIS [None]
  - BLOOD CHLORIDE DECREASED [None]
  - BLOOD CREATININE DECREASED [None]
  - BLOOD POTASSIUM DECREASED [None]
  - BLOOD SODIUM DECREASED [None]
  - CONDITION AGGRAVATED [None]
  - DIZZINESS [None]
  - PLEURAL EFFUSION [None]
  - PNEUMONIA [None]
  - UPPER RESPIRATORY TRACT INFECTION [None]
  - VOMITING [None]
